FAERS Safety Report 6683163-7 (Version None)
Quarter: 2010Q2

REPORT INFORMATION
  Report Type: 
  Country: None (occurrence: None)
  Receive Date: 20100415
  Receipt Date: 20100405
  Transmission Date: 20101027
  Serious: Yes (Other)
  Sender: FDA-Public Use
  Company Number: TR-PFIZER INC-2010043294

PATIENT
  Age: 9 Year
  Sex: Male

DRUGS (4)
  1. IDARUBICIN HCL [Suspect]
     Indication: ACUTE MYELOID LEUKAEMIA
  2. CYTARABINE [Suspect]
     Indication: ACUTE MYELOID LEUKAEMIA
  3. ETOPOSIDE [Suspect]
     Indication: ACUTE MYELOID LEUKAEMIA
  4. RETINOIC ACID [Concomitant]
     Indication: ACUTE MYELOID LEUKAEMIA

REACTIONS (1)
  - GLOMERULOSCLEROSIS [None]
